FAERS Safety Report 6182141-4 (Version None)
Quarter: 2009Q2

REPORT INFORMATION
  Report Type: 
  Country: None (occurrence: None)
  Receive Date: 20090507
  Receipt Date: 20090501
  Transmission Date: 20091009
  Serious: Yes (Other)
  Sender: FDA-Public Use
  Company Number: CA-PFIZER INC-2009206703

PATIENT

DRUGS (6)
  1. LIPITOR [Suspect]
     Dosage: 30 MG, 1X/DAY (20MG + 10MG)
     Dates: start: 19990101
  2. AMLODIPINE BESILATE [Concomitant]
     Dosage: UNK
  3. PROSCAR [Concomitant]
     Dosage: UNK
  4. RAMIPRIL [Concomitant]
     Dosage: UNK
  5. LOSEC [Concomitant]
     Dosage: UNK
  6. WELLBUTRIN XL [Concomitant]
     Indication: DEPRESSION
     Dosage: UNK

REACTIONS (3)
  - FATIGUE [None]
  - MYALGIA [None]
  - PARKINSON'S DISEASE [None]
